FAERS Safety Report 6498216-6 (Version None)
Quarter: 2009Q4

REPORT INFORMATION
  Report Type: 
  Country: None (occurrence: None)
  Receive Date: 20091215
  Receipt Date: 20091209
  Transmission Date: 20100525
  Serious: Yes (Other)
  Sender: FDA-Public Use
  Company Number: A0834874A

PATIENT
  Age: 66 Year
  Sex: Male

DRUGS (9)
  1. WELLBUTRIN [Suspect]
     Indication: DEPRESSION
     Dosage: 150MG TWICE PER DAY
     Route: 048
     Dates: start: 20091001
  2. METOPROLOL [Concomitant]
  3. METFORMIN HCL [Concomitant]
  4. LOVAZA [Concomitant]
  5. VYTORIN [Concomitant]
  6. MULTI-VITAMIN [Concomitant]
  7. COENZYME Q10 [Concomitant]
  8. ST JOHN'S WORT [Concomitant]
  9. SAW PALMETTO [Concomitant]

REACTIONS (3)
  - GASTROINTESTINAL HAEMORRHAGE [None]
  - MOOD SWINGS [None]
  - SEXUAL DYSFUNCTION [None]
